FAERS Safety Report 13738634 (Version 1)
Quarter: 2017Q3

REPORT INFORMATION
  Report Type: Spontaneous
  Country: US (occurrence: US)
  Receive Date: 20170710
  Receipt Date: 20170710
  Transmission Date: 20171127
  Serious: Yes (Other)
  Sender: FDA-Public Use
  Company Number: US-SAOL THERAPEUTICS-2017SAO00301

PATIENT
  Sex: Male

DRUGS (3)
  1. BACLOFEN. [Suspect]
     Active Substance: BACLOFEN
     Dosage: 1000 ?G, \DAY
  2. BACLOFEN. [Suspect]
     Active Substance: BACLOFEN
     Dosage: 1000 ?G, \DAY
     Route: 037
     Dates: start: 20170208
  3. BACLOFEN. [Suspect]
     Active Substance: BACLOFEN
     Dosage: 1370 ?G, \DAY
     Route: 037
     Dates: end: 20170208

REACTIONS (2)
  - Device occlusion [Recovered/Resolved]
  - Therapeutic response unexpected [Recovered/Resolved]
